FAERS Safety Report 20109175 (Version 4)
Quarter: 2022Q3

REPORT INFORMATION
  Report Type: Report from Study
  Country: CA (occurrence: CA)
  Receive Date: 20211124
  Receipt Date: 20220926
  Transmission Date: 20221026
  Serious: Yes (Other)
  Sender: FDA-Public Use
  Company Number: CA-PFIZER INC-202101352385

PATIENT
  Age: 59 Year
  Sex: Female

DRUGS (15)
  1. METHOTREXATE SODIUM [Suspect]
     Active Substance: METHOTREXATE SODIUM
     Route: 065
  2. METHYLPREDNISOLONE SODIUM SUCCINATE [Suspect]
     Active Substance: METHYLPREDNISOLONE SODIUM SUCCINATE
     Dosage: 100 MG
     Route: 042
  3. RITUXIMAB [Suspect]
     Active Substance: RITUXIMAB
     Indication: Systemic scleroderma
     Dosage: 1000 MG
     Route: 042
  4. RITUXIMAB [Suspect]
     Active Substance: RITUXIMAB
     Dosage: UNK
     Route: 065
  5. RITUXIMAB [Suspect]
     Active Substance: RITUXIMAB
     Dosage: 1000 MG
     Route: 042
  6. RITUXIMAB [Suspect]
     Active Substance: RITUXIMAB
     Indication: Systemic scleroderma
     Dosage: UNK
     Route: 042
  7. RITUXIMAB [Suspect]
     Active Substance: RITUXIMAB
     Dosage: 1000 MG
     Route: 042
  8. RITUXIMAB [Suspect]
     Active Substance: RITUXIMAB
     Dosage: 1000 MG
     Route: 042
  9. RITUXIMAB [Suspect]
     Active Substance: RITUXIMAB
     Dosage: 1000 MG
     Route: 042
  10. ACETAMINOPHEN [Suspect]
     Active Substance: ACETAMINOPHEN
     Dosage: 650 MG
     Route: 065
  11. ACETAMINOPHEN [Suspect]
     Active Substance: ACETAMINOPHEN
     Dosage: 650 MG
     Route: 048
  12. DIPHENHYDRAMINE [Suspect]
     Active Substance: DIPHENHYDRAMINE
     Dosage: 50 MG
     Route: 048
  13. ACETAMINOPHEN [Concomitant]
     Active Substance: ACETAMINOPHEN
     Dosage: 650 MG
     Route: 048
  14. DIPHENHYDRAMINE HYDROCHLORIDE [Concomitant]
     Active Substance: DIPHENHYDRAMINE HYDROCHLORIDE
     Dosage: 50 MG
     Route: 048
  15. METHYLPREDNISOLONE [Concomitant]
     Active Substance: METHYLPREDNISOLONE
     Dosage: 100 MG
     Route: 042

REACTIONS (8)
  - Asthma [Unknown]
  - Pulmonary embolism [Unknown]
  - Breast cyst [Unknown]
  - Malaise [Unknown]
  - Pain [Unknown]
  - Drug ineffective [Unknown]
  - Off label use [Unknown]
  - Product use in unapproved indication [Unknown]
